FAERS Safety Report 9555588 (Version 1)
Quarter: 2013Q3

REPORT INFORMATION
  Report Type: Spontaneous
  Country: US (occurrence: None)
  Receive Date: 20130830
  Receipt Date: 20130830
  Transmission Date: 20140515
  Serious: Yes (Death, Hospitalization)
  Sender: FDA-Public Use
  Company Number: 2013GMK006135

PATIENT
  Age: 5 Year
  Sex: Female
  Weight: 16 kg

DRUGS (4)
  1. LAMOTRIX [Suspect]
     Route: 048
     Dates: start: 201205
  2. CLONAZEPAM (CLONAZEPAM) (CLONAZEPAM) [Concomitant]
  3. OSPEN / 00001801 / (PHENOXYMETHYLPENICILLIN) [Concomitant]
  4. IBUPROM (IBUPROFEN) [Concomitant]

REACTIONS (5)
  - Toxic epidermal necrolysis [None]
  - Pyrexia [None]
  - Skin lesion [None]
  - Blister [None]
  - Skin exfoliation [None]
